FAERS Safety Report 4957300-6 (Version None)
Quarter: 2006Q1

REPORT INFORMATION
  Report Type: 
  Country: None (occurrence: None)
  Receive Date: 20060323
  Receipt Date: 20060307
  Transmission Date: 20060701
  Serious: Yes (Hospitalization, Other)
  Sender: FDA-Public Use
  Company Number: US200602003623

PATIENT
  Age: 73 Year
  Sex: Female

DRUGS (13)
  1. FORTEO [Suspect]
     Indication: OSTEOPOROSIS
     Dosage: 20 UG, DAILY (1/D),
     Dates: start: 20031201
  2. FORTEO [Concomitant]
  3. FORTEO [Concomitant]
  4. SIMVASTATIN [Concomitant]
  5. ACTONEL/USA/(RISEDRONATE SODIUM) [Concomitant]
  6. DILANTIN [Concomitant]
  7. RANITIDINE [Concomitant]
  8. ALLEGRA [Concomitant]
  9. VITAMIN E [Concomitant]
  10. GLUCOSAMINE (GLUCOSAMINE) [Concomitant]
  11. B-COMPLEX ^KRKA^ (VITAMIN B NOS) [Concomitant]
  12. CALTRATE + D (CALCIUM CARBONATE, COLECALCIFEROL) [Concomitant]
  13. ACIPHEX [Concomitant]

REACTIONS (6)
  - ASTHENIA [None]
  - FALL [None]
  - HEAD INJURY [None]
  - MUSCULOSKELETAL DISORDER [None]
  - PHARMACEUTICAL PRODUCT COMPLAINT [None]
  - SUBDURAL HAEMATOMA [None]
